FAERS Safety Report 4313101-3 (Version None)
Quarter: 2004Q1

REPORT INFORMATION
  Report Type: 
  Country: None (occurrence: None)
  Receive Date: 20040304
  Receipt Date: 20040218
  Transmission Date: 20041129
  Serious: Yes (Hospitalization)
  Sender: FDA-Public Use
  Company Number: EWC040238108

PATIENT
  Age: 67 Year
  Sex: Female

DRUGS (2)
  1. EVISTA [Suspect]
     Indication: MENOPAUSAL SYMPTOMS
     Dosage: 60 MG/1 DAY
     Dates: start: 20021015, end: 20030110
  2. EVISTA [Suspect]
     Indication: OSTEOPOROSIS
     Dosage: 60 MG/1 DAY
     Dates: start: 20021015, end: 20030110

REACTIONS (1)
  - HEPATITIS G [None]
